FAERS Safety Report 5315667-3 (Version None)
Quarter: 2007Q2

REPORT INFORMATION
  Report Type: 
  Country: None (occurrence: None)
  Receive Date: 20070501
  Receipt Date: 20070501
  Transmission Date: 20071010
  Serious: Yes (Other)
  Sender: FDA-Public Use
  Company Number: None

PATIENT
  Age: 49 Year
  Sex: Female
  Weight: 61.2356 kg

DRUGS (1)
  1. MONISTAT [Suspect]
     Indication: VULVOVAGINAL MYCOTIC INFECTION
     Dosage: ONE CAPSULE 1X VAG
     Route: 067
     Dates: start: 20070424, end: 20070424

REACTIONS (7)
  - CONDITION AGGRAVATED [None]
  - PHARMACEUTICAL PRODUCT COMPLAINT [None]
  - VAGINAL BURNING SENSATION [None]
  - VAGINAL DISCHARGE [None]
  - VAGINAL PAIN [None]
  - VULVOVAGINAL DISCOMFORT [None]
  - VULVOVAGINAL MYCOTIC INFECTION [None]
